FAERS Safety Report 4296434-9 (Version None)
Quarter: 2004Q1

REPORT INFORMATION
  Report Type: 
  Country: None (occurrence: None)
  Receive Date: 20040115
  Receipt Date: 20031202
  Transmission Date: 20041129
  Serious: No
  Sender: FDA-Public Use
  Company Number: 200311384BVD

PATIENT

DRUGS (1)
  1. GAMIMUNE N 10% [Suspect]
     Dosage: 100 ML, TOTAL DAILY,
     Route: 042

REACTIONS (1)
  - PRURITUS [None]
